FAERS Safety Report 12178811 (Version 1)
Quarter: 2016Q1

REPORT INFORMATION
  Report Type: Spontaneous
  Country: US (occurrence: None)
  Receive Date: 20160314
  Receipt Date: 20160314
  Transmission Date: 20160526
  Serious: No
  Sender: FDA-Public Use
  Company Number: None

PATIENT
  Age: 29 Year
  Sex: Female
  Weight: 65.32 kg

DRUGS (9)
  1. EFFEXOR [Concomitant]
     Active Substance: VENLAFAXINE HYDROCHLORIDE
  2. CHLORDIAZEPOXIDE [Concomitant]
     Active Substance: CHLORDIAZEPOXIDE
  3. VITAMIN D [Concomitant]
     Active Substance: CHOLECALCIFEROL
  4. METADATE [Concomitant]
     Active Substance: METHYLPHENIDATE HYDROCHLORIDE
  5. MEDROXYPROGESTERONE [Concomitant]
     Active Substance: MEDROXYPROGESTERONE
  6. IBUPROFEN. [Concomitant]
     Active Substance: IBUPROFEN
  7. XANAX [Concomitant]
     Active Substance: ALPRAZOLAM
  8. THIOTHIXENE 1 MG MYLAN [Suspect]
     Active Substance: THIOTHIXENE
     Indication: INSOMNIA
     Dosage: 1 TABLET AT BEDTIME TAKEN BY MOUTH
     Route: 048
  9. BIOTIN [Concomitant]
     Active Substance: BIOTIN

REACTIONS (4)
  - Nightmare [None]
  - Middle insomnia [None]
  - Hallucination, auditory [None]
  - Abnormal dreams [None]

NARRATIVE: CASE EVENT DATE: 20160311
